FAERS Safety Report 24341012 (Version 1)
Quarter: 2024Q3

REPORT INFORMATION
  Report Type: Spontaneous
  Country: US (occurrence: US)
  Receive Date: 20240919
  Receipt Date: 20240919
  Transmission Date: 20241016
  Serious: Yes (Other)
  Sender: NOVARTIS
  Company Number: US-002147023-NVSC2024US184977

PATIENT

DRUGS (5)
  1. XOLAIR [Suspect]
     Active Substance: OMALIZUMAB
     Indication: Urticaria
     Dosage: UNK
     Route: 065
  2. CYCLOSPORINE [Suspect]
     Active Substance: CYCLOSPORINE
     Indication: Product used for unknown indication
     Dosage: UNK
     Route: 065
  3. TRIAMCINOLONE [Suspect]
     Active Substance: TRIAMCINOLONE
     Indication: Product used for unknown indication
     Dosage: UNK
     Route: 065
  4. PROTOPIC [Suspect]
     Active Substance: TACROLIMUS
     Indication: Product used for unknown indication
     Dosage: UNK
     Route: 065
  5. ELIDEL [Suspect]
     Active Substance: PIMECROLIMUS
     Indication: Product used for unknown indication
     Dosage: UNK
     Route: 065

REACTIONS (19)
  - Condition aggravated [Unknown]
  - Swelling [Unknown]
  - Eye swelling [Unknown]
  - Heart rate increased [Unknown]
  - Rash [Unknown]
  - Pruritus [Unknown]
  - Dyspnoea [Unknown]
  - Arthralgia [Unknown]
  - Mobility decreased [Unknown]
  - Visual impairment [Unknown]
  - Erythema [Unknown]
  - Anaphylactic reaction [Unknown]
  - Depressed mood [Unknown]
  - Injury [Unknown]
  - Limb injury [Unknown]
  - Insomnia [Unknown]
  - Alopecia [Unknown]
  - Eczema [Unknown]
  - Treatment failure [Unknown]
